FAERS Safety Report 6773116-2 (Version None)
Quarter: 2010Q2

REPORT INFORMATION
  Report Type: 
  Country: None (occurrence: None)
  Receive Date: 20100616
  Receipt Date: 20100604
  Transmission Date: 20101027
  Serious: Yes (Hospitalization)
  Sender: FDA-Public Use
  Company Number: US-ELI_LILLY_AND_COMPANY-US201006002510

PATIENT
  Sex: Female

DRUGS (12)
  1. FORTEO [Suspect]
     Indication: OSTEOPOROSIS
     Dosage: 20 UG, DAILY (1/D)
     Dates: start: 20080601
  2. WARFARIN [Concomitant]
  3. DIAZEPAM [Concomitant]
  4. ANTIVERT /00072802/ [Concomitant]
  5. ZETIA [Concomitant]
  6. TRICOR [Concomitant]
  7. SIMVASTATIN [Concomitant]
  8. PANTOPRAZOLE [Concomitant]
     Dosage: 40 MG, UNKNOWN
  9. VERAPAMIL [Concomitant]
  10. VICODIN [Concomitant]
  11. CALCIUM CARBONATE [Concomitant]
  12. VITAMIN D [Concomitant]

REACTIONS (3)
  - DYSPNOEA [None]
  - GASTROOESOPHAGEAL REFLUX DISEASE [None]
  - VOCAL CORD DISORDER [None]
